FAERS Safety Report 7221151-2 (Version None)
Quarter: 2011Q1

REPORT INFORMATION
  Report Type: 
  Country: None (occurrence: None)
  Receive Date: 20110112
  Receipt Date: 20110103
  Transmission Date: 20110831
  Serious: No
  Sender: FDA-Public Use
  Company Number: US-PFIZER INC-US-WYE-H15805110

PATIENT
  Sex: Female
  Weight: 61.2 kg

DRUGS (8)
  1. PRINIVIL [Concomitant]
     Indication: HYPERTENSION
     Dosage: UNK
     Route: 065
  2. PRISTIQ [Suspect]
     Indication: DEPRESSION
     Dosage: 50.0 MG, 1X/DAY
     Route: 048
     Dates: start: 20091120, end: 20091127
  3. DEPAKOTE [Concomitant]
     Dosage: UNKNOWN
  4. PRISTIQ [Suspect]
     Dosage: RESTARTED 50 MG SAMPLES
     Route: 048
     Dates: start: 20100621
  5. PRAVASTATIN [Concomitant]
     Dosage: UNK
     Route: 065
  6. NORVASC [Suspect]
     Indication: HYPERTENSION
     Dosage: UNK
     Route: 065
  7. FISH OIL, HYDROGENATED [Concomitant]
     Dosage: UNK
     Route: 065
  8. SEROQUEL [Concomitant]
     Dosage: UNKNOWN

REACTIONS (1)
  - HYPERTENSION [None]
